FAERS Safety Report 13120814 (Version 4)
Quarter: 2018Q3

REPORT INFORMATION
  Report Type: Report from Study
  Country: GB (occurrence: GB)
  Receive Date: 20170117
  Receipt Date: 20180706
  Transmission Date: 20181010
  Serious: Yes (Death, Hospitalization, Other)
  Sender: FDA-Public Use
  Company Number: GB-AMGEN-GBRNI2017006187

PATIENT
  Age: 71 Year
  Sex: Male

DRUGS (1)
  1. ETANERCEPT [Suspect]
     Active Substance: ETANERCEPT
     Indication: ANKYLOSING SPONDYLITIS
     Dosage: 50 MG, UNK
     Route: 058
     Dates: start: 20040921, end: 20150318

REACTIONS (2)
  - Bladder transitional cell carcinoma metastatic [Fatal]
  - Intestinal obstruction [Fatal]

NARRATIVE: CASE EVENT DATE: 20150318
